FAERS Safety Report 6054993-X (Version None)
Quarter: 2009Q1

REPORT INFORMATION
  Report Type: 
  Country: None (occurrence: None)
  Receive Date: 20090122
  Receipt Date: 20090115
  Transmission Date: 20090719
  Serious: Yes (Other)
  Sender: FDA-Public Use
  Company Number: 2009SP001054

PATIENT
  Sex: Female

DRUGS (1)
  1. NASOMET (MOMETASONE FUROATE (NASAL)) (MOMETASONE FUROATE) [Suspect]
     Indication: DRUG USE FOR UNKNOWN INDICATION
     Dosage: ONCE
     Dates: start: 20081201, end: 20081201

REACTIONS (2)
  - DRUG HYPERSENSITIVITY [None]
  - SWELLING [None]
